FAERS Safety Report 10351144 (Version 1)
Quarter: 2014Q3

REPORT INFORMATION
  Report Type: Spontaneous
  Country: US (occurrence: US)
  Receive Date: 20140730
  Receipt Date: 20140730
  Transmission Date: 20150326
  Serious: No
  Sender: FDA-Public Use
  Company Number: US-009507513-1407USA013283

PATIENT
  Age: 66 Year
  Sex: Female

DRUGS (2)
  1. DULCOLAX [Concomitant]
     Active Substance: BISACODYL OR DOCUSATE SODIUM
     Indication: PRODUCT USED FOR UNKNOWN INDICATION
     Dosage: UNK, UNKNOWN
     Dates: start: 20140722, end: 20140722
  2. MIRALAX [Suspect]
     Active Substance: POLYETHYLENE GLYCOL 3350
     Indication: COLONOSCOPY
     Dosage: UNK, UNKNOWN
     Route: 048
     Dates: start: 20140722, end: 20140722

REACTIONS (5)
  - Abdominal distension [Recovered/Resolved]
  - Pruritus [Not Recovered/Not Resolved]
  - Drug prescribing error [Unknown]
  - Nausea [Recovered/Resolved]
  - Urticaria [Not Recovered/Not Resolved]

NARRATIVE: CASE EVENT DATE: 20140722
